FAERS Safety Report 16141023 (Version 1)
Quarter: 2019Q2

REPORT INFORMATION
  Report Type: Spontaneous
  Country: GB (occurrence: GB)
  Receive Date: 20190401
  Receipt Date: 20190401
  Transmission Date: 20190711
  Serious: Yes (Other)
  Sender: FDA-Public Use
  Company Number: GB-TEVA-2019-GB-1031363

PATIENT
  Age: 65 Year
  Sex: Female
  Weight: 88.9 kg

DRUGS (4)
  1. BETNOVATE [Suspect]
     Active Substance: BETAMETHASONE
     Indication: DERMATITIS
     Dosage: 2 CM APPROXIMATELY
     Route: 061
     Dates: start: 20190215, end: 20190224
  2. BENDROFLUMETHIAZIDE [Concomitant]
     Active Substance: BENDROFLUMETHIAZIDE
     Dosage: 2.5 MILLIGRAM DAILY;
  3. VALSARTAN. [Concomitant]
     Active Substance: VALSARTAN
     Dosage: 80 MILLIGRAM DAILY;
  4. HYDROCORTISONE. [Suspect]
     Active Substance: HYDROCORTISONE
     Indication: DERMATITIS CONTACT
     Dosage: 1 CM. USED IT OFF AND ON FOR THE PREVIOUS THREE MONTHS.
     Route: 061
     Dates: start: 201811

REACTIONS (2)
  - Reaction to preservatives [Unknown]
  - Dermatitis [Recovering/Resolving]

NARRATIVE: CASE EVENT DATE: 20190217
